FAERS Safety Report 9563720 (Version 1)
Quarter: 2013Q3

REPORT INFORMATION
  Report Type: Spontaneous
  Country: US (occurrence: None)
  Receive Date: 20130926
  Receipt Date: 20130926
  Transmission Date: 20140515
  Serious: Yes (Hospitalization)
  Sender: FDA-Public Use
  Company Number: None

PATIENT
  Sex: Female
  Weight: 58.97 kg

DRUGS (3)
  1. AMBIEN [Suspect]
     Indication: SLEEP DISORDER
     Dosage: ONE PILL TO AID SLEEP BY MOUTH
     Dates: start: 20050315, end: 20050315
  2. ZYRTEC [Concomitant]
  3. VITAMIN SUPPLEMENTS FOR OLD LADIES [Concomitant]

REACTIONS (3)
  - Petit mal epilepsy [None]
  - Somnambulism [None]
  - Road traffic accident [None]
